FAERS Safety Report 26005686 (Version 1)
Quarter: 2025Q4

REPORT INFORMATION
  Report Type: Spontaneous
  Country: CL (occurrence: CL)
  Receive Date: 20251106
  Receipt Date: 20251106
  Transmission Date: 20260118
  Serious: Yes (Other)
  Sender: TEVA
  Company Number: CL-TEVA-VS-3389149

PATIENT

DRUGS (1)
  1. OXALIPLATIN [Suspect]
     Active Substance: OXALIPLATIN
     Indication: Product used for unknown indication
     Route: 065

REACTIONS (8)
  - Respiratory depression [Unknown]
  - Pruritus [Unknown]
  - Flushing [Unknown]
  - Nausea [Unknown]
  - Tremor [Unknown]
  - Systolic hypertension [Unknown]
  - Cyanosis [Unknown]
  - Diastolic hypertension [Unknown]
